FAERS Safety Report 6096493-7 (Version None)
Quarter: 2009Q1

REPORT INFORMATION
  Report Type: 
  Country: None (occurrence: None)
  Receive Date: 20090227
  Receipt Date: 20090216
  Transmission Date: 20090719
  Serious: Yes (Other)
  Sender: FDA-Public Use
  Company Number: US-ELI_LILLY_AND_COMPANY-US200810004261

PATIENT
  Age: 71 Year
  Sex: Female

DRUGS (7)
  1. EVISTA [Suspect]
     Indication: OSTEOPOROSIS PROPHYLAXIS
     Dosage: 60 MG, DAILY (1/D)
     Route: 048
     Dates: start: 20030101, end: 20080901
  2. ZOCOR [Concomitant]
     Dosage: UNK, UNKNOWN
     Route: 065
  3. ASPIRIN [Concomitant]
     Dosage: UNK, DAILY (1/D)
     Route: 048
  4. CALCIUM W/VITAMIN D NOS [Concomitant]
     Dosage: UNK, DAILY (1/D)
     Route: 065
  5. ALLEGRA [Concomitant]
     Dosage: UNK, DAILY (1/D)
     Route: 048
  6. FLONASE [Concomitant]
     Dosage: UNK, DAILY (1/D)
     Route: 045
  7. ARIMIDEX [Concomitant]
     Dosage: UNK, UNKNOWN
     Route: 065

REACTIONS (3)
  - BREAST CANCER [None]
  - OESTROGEN RECEPTOR ASSAY POSITIVE [None]
  - TREATMENT FAILURE [None]
